FAERS Safety Report 7163324-3 (Version None)
Quarter: 2010Q4

REPORT INFORMATION
  Report Type: 
  Country: None (occurrence: None)
  Receive Date: 20101215
  Receipt Date: 20100325
  Transmission Date: 20110411
  Serious: Yes (Other)
  Sender: FDA-Public Use
  Company Number: US-PFIZER INC-2010015054

PATIENT
  Sex: Female

DRUGS (2)
  1. LYRICA [Suspect]
     Indication: DEPRESSION
     Dosage: 900 MG, 1X/DAY
     Route: 048
     Dates: start: 20080101
  2. LYRICA [Suspect]
     Indication: ANXIETY

REACTIONS (3)
  - DRUG INEFFECTIVE [None]
  - VOMITING [None]
  - WITHDRAWAL SYNDROME [None]
